FAERS Safety Report 21178132 (Version 1)
Quarter: 2022Q3

REPORT INFORMATION
  Report Type: Spontaneous
  Country: US (occurrence: US)
  Receive Date: 20220805
  Receipt Date: 20220805
  Transmission Date: 20221027
  Serious: Yes (Other)
  Sender: FDA-Public Use
  Company Number: US-STRIDES ARCOLAB LIMITED-2022SP006827

PATIENT
  Age: 65 Year
  Sex: Female

DRUGS (10)
  1. CETIRIZINE [Suspect]
     Active Substance: CETIRIZINE HYDROCHLORIDE
     Indication: Rash pruritic
     Dosage: UNK
     Route: 065
  2. LORATADINE [Suspect]
     Active Substance: LORATADINE
     Indication: Rash pruritic
     Dosage: UNK
     Route: 065
  3. MOMETASONE [Suspect]
     Active Substance: MOMETASONE
     Indication: Rash pruritic
     Dosage: UNK
     Route: 061
  4. PREDNISONE [Concomitant]
     Active Substance: PREDNISONE
     Indication: Rash pruritic
     Dosage: 50 MILLIGRAM PER DAY
     Route: 065
  5. PREDNISONE [Concomitant]
     Active Substance: PREDNISONE
     Dosage: 7.5 MILLIGRAM PER DAY
     Route: 065
  6. PREDNISONE [Concomitant]
     Active Substance: PREDNISONE
     Dosage: 5 MILLIGRAM PER DAY
     Route: 065
  7. PREDNISONE [Concomitant]
     Active Substance: PREDNISONE
     Dosage: UNK (DOSE REDUCED)
     Route: 065
  8. PREDNISONE [Concomitant]
     Active Substance: PREDNISONE
     Dosage: UNK (DOSE TAPPERED)
     Route: 065
  9. PREDNISONE [Concomitant]
     Active Substance: PREDNISONE
     Dosage: 50 MILLIGRAM PER DAY
     Route: 065
  10. ZOTAROLIMUS [Concomitant]
     Active Substance: ZOTAROLIMUS
     Indication: Coronary artery disease
     Dosage: UNK TWO ZOTAROLIMUS ELUTING STENTS
     Route: 065

REACTIONS (1)
  - Drug ineffective for unapproved indication [Unknown]
